FAERS Safety Report 7038244-5 (Version None)
Quarter: 2010Q4

REPORT INFORMATION
  Report Type: 
  Country: None (occurrence: None)
  Receive Date: 20101011
  Receipt Date: 20091104
  Transmission Date: 20110411
  Serious: No
  Sender: FDA-Public Use
  Company Number: US-PFIZER INC-2009293882

PATIENT
  Sex: Female
  Weight: 63 kg

DRUGS (5)
  1. GABAPENTIN [Suspect]
     Indication: BACK PAIN
     Dosage: UNK
  2. GABAPENTIN [Suspect]
     Dosage: RESTARTED
  3. HUMIRA [Suspect]
     Indication: RHEUMATOID ARTHRITIS
     Dosage: 40 MG, ONCE IN 2 WK
     Route: 058
     Dates: start: 20090701
  4. FOLIC ACID [Concomitant]
     Indication: SUPPLEMENTATION THERAPY
     Dosage: UNK
  5. PREDNISONE [Concomitant]
     Indication: RHEUMATOID ARTHRITIS
     Dosage: UNK

REACTIONS (6)
  - ABDOMINAL PAIN UPPER [None]
  - EAR PAIN [None]
  - HEADACHE [None]
  - OROPHARYNGEAL PAIN [None]
  - TREMOR [None]
  - WEIGHT DECREASED [None]
